FAERS Safety Report 5036671-9 (Version None)
Quarter: 2006Q2

REPORT INFORMATION
  Report Type: 
  Country: None (occurrence: None)
  Receive Date: 20060601
  Receipt Date: 20060406
  Transmission Date: 20061013
  Serious: No
  Sender: FDA-Public Use
  Company Number: US200604001219

PATIENT
  Age: 32 Year
  Sex: Female

DRUGS (5)
  1. SYMBYAX [Suspect]
     Indication: BIPOLAR DISORDER
     Dosage: EACH EVENING (6MG/25MG)
     Dates: start: 20060201
  2. CYMBALTA [Suspect]
     Dosage: 60 MG
     Dates: start: 20050101, end: 20060201
  3. CYMBALTA [Suspect]
     Dosage: 60 MG
     Dates: start: 20060403, end: 20060403
  4. DARVOCET [Concomitant]
  5. XANAX [Concomitant]

REACTIONS (4)
  - DRUG SCREEN POSITIVE [None]
  - MEDICATION ERROR [None]
  - MEMORY IMPAIRMENT [None]
  - MIGRAINE [None]
